FAERS Safety Report 20758783 (Version 1)
Quarter: 2022Q2

REPORT INFORMATION
  Report Type: Spontaneous
  Country: US (occurrence: US)
  Receive Date: 20220427
  Receipt Date: 20220427
  Transmission Date: 20220721
  Serious: Yes (Other)
  Sender: FDA-Public Use
  Company Number: US-CELGENE-USA-20220206086

PATIENT
  Age: 75 Year
  Sex: Female

DRUGS (2)
  1. REVLIMID [Suspect]
     Active Substance: LENALIDOMIDE
     Indication: Plasma cell myeloma
     Dosage: 25 MILLIGRAM
     Route: 048
     Dates: start: 20211123
  2. REVLIMID [Suspect]
     Active Substance: LENALIDOMIDE
     Dosage: TAKE 1CAPSULE BY MOUTH DAILY FOR 21 DAYS, THEN 7 DAYS OFF. REPEAT EVERY 28 DAYS. DO NOT BREAK OPEN O
     Route: 048
     Dates: start: 20211123

REACTIONS (7)
  - Product dose omission issue [Recovered/Resolved]
  - Coronary artery disease [Unknown]
  - Headache [Unknown]
  - Viral infection [Unknown]
  - Nausea [Unknown]
  - Diarrhoea [Unknown]
  - Paraesthesia [Unknown]
